FAERS Safety Report 7472169-6 (Version None)
Quarter: 2011Q2

REPORT INFORMATION
  Report Type: 
  Country: None (occurrence: None)
  Receive Date: 20110511
  Receipt Date: 20110214
  Transmission Date: 20111010
  Serious: No
  Sender: FDA-Public Use
  Company Number: A0913431A

PATIENT
  Age: 49 Year
  Sex: Female

DRUGS (3)
  1. HERCEPTIN [Concomitant]
     Indication: BREAST CANCER
     Dosage: 140MG WEEKLY
     Route: 042
     Dates: start: 20010907
  2. COREG CR [Concomitant]
  3. TYKERB [Suspect]
     Indication: BREAST CANCER
     Dosage: 1500MG PER DAY
     Route: 048
     Dates: start: 20110131

REACTIONS (4)
  - PRURITUS [None]
  - RASH [None]
  - DIARRHOEA [None]
  - ACNE [None]
